FAERS Safety Report 4413004-X (Version None)
Quarter: 2004Q3

REPORT INFORMATION
  Report Type: 
  Country: None (occurrence: None)
  Receive Date: 20040802
  Receipt Date: 20040422
  Transmission Date: 20050211
  Serious: No
  Sender: FDA-Public Use
  Company Number: US-GLAXOSMITHKLINE-A0508062A

PATIENT
  Age: 5 Year
  Sex: Male

DRUGS (3)
  1. ZANTAC [Suspect]
     Dosage: 2ML TWICE PER DAY
     Route: 048
     Dates: end: 20040329
  2. RISPERDAL [Concomitant]
  3. IMMUNE GLOBULIN INTRAVENOUS (HUMAN) [Concomitant]

REACTIONS (1)
  - PHOTOSENSITIVITY REACTION [None]
